APPROVED DRUG PRODUCT: EXENATIDE SYNTHETIC
Active Ingredient: EXENATIDE SYNTHETIC
Strength: 600MCG/2.4ML (250MCG/ML)
Dosage Form/Route: INJECTABLE;SUBCUTANEOUS
Application: A206697 | Product #002
Applicant: AMNEAL EU LTD
Approved: Nov 19, 2024 | RLD: No | RS: Yes | Type: RX